FAERS Safety Report 8376180-2 (Version None)
Quarter: 2012Q2

REPORT INFORMATION
  Report Type: 
  Country: None (occurrence: None)
  Receive Date: 20120522
  Receipt Date: 20120514
  Transmission Date: 20120825
  Serious: Yes (Other)
  Sender: FDA-Public Use
  Company Number: CA-B.I. PHARMACEUTICALS,INC./RIDGEFIELD-2012-EU-02641GD

PATIENT

DRUGS (3)
  1. THEOPHYLLINE [Suspect]
     Indication: CHRONIC OBSTRUCTIVE PULMONARY DISEASE
     Dosage: INITIALLY AT DOSES OF 400, 600, OR 800 MG QD DEPENDING ON BODY WEIGHT (10 MG/KG OF BODY WEIGHT, WITH
     Route: 048
  2. TIOTROPIUM [Suspect]
     Indication: CHRONIC OBSTRUCTIVE PULMONARY DISEASE
     Dosage: 18 MCG
  3. LONG-ACTING INHALED BETA-AGONIST [Suspect]
     Indication: CHRONIC OBSTRUCTIVE PULMONARY DISEASE
     Dosage: EITHER SALMETEROL 50 MCG BID OR FORMOTEROL 12 MCG BID
     Route: 055

REACTIONS (1)
  - NAUSEA [None]
